FAERS Safety Report 6821001-X (Version None)
Quarter: 2010Q3

REPORT INFORMATION
  Report Type: 
  Country: None (occurrence: None)
  Receive Date: 20100707
  Receipt Date: 20070807
  Transmission Date: 20110219
  Serious: No
  Sender: FDA-Public Use
  Company Number: US-PFIZER INC-2007065561

PATIENT
  Sex: Male
  Weight: 73.6 kg

DRUGS (7)
  1. ZOLOFT [Suspect]
     Indication: ANXIETY
     Dates: start: 20070803
  2. ZOLOFT [Suspect]
     Indication: DEPRESSION
  3. KLONOPIN [Concomitant]
  4. PROTONIX [Concomitant]
  5. ASACOL [Concomitant]
     Indication: COLITIS
  6. LAMICTAL [Concomitant]
     Indication: ANXIETY
  7. LAMICTAL [Concomitant]
     Indication: DEPRESSION

REACTIONS (2)
  - AGITATION [None]
  - MALAISE [None]
